FAERS Safety Report 7931795-8 (Version None)
Quarter: 2011Q4

REPORT INFORMATION
  Report Type: 
  Country: None (occurrence: None)
  Receive Date: 20111121
  Receipt Date: 20111118
  Transmission Date: 20120403
  Serious: Yes (Death, Other)
  Sender: FDA-Public Use
  Company Number: TR-ABBOTT-11P-161-0862978-00

PATIENT
  Sex: Male
  Weight: 57 kg

DRUGS (4)
  1. ZEMPLAR [Suspect]
     Indication: RENAL IMPAIRMENT
     Route: 042
     Dates: start: 20110718, end: 20110916
  2. CALCIUM CARBONATE [Concomitant]
     Indication: PRODUCT USED FOR UNKNOWN INDICATION
     Dosage: 3X 500 MG
     Dates: start: 20100110, end: 20111116
  3. ESA [Concomitant]
     Indication: PRODUCT USED FOR UNKNOWN INDICATION
     Dosage: 5000 U/ WEEK
     Dates: start: 20100110, end: 20110916
  4. ERYTHROPOIETINE [Concomitant]
     Indication: PRODUCT USED FOR UNKNOWN INDICATION
     Route: 042
     Dates: end: 20110916

REACTIONS (5)
  - RESPIRATORY ARREST [None]
  - HEPATIC CANCER METASTATIC [None]
  - ABDOMINAL PAIN UPPER [None]
  - STATUS EPILEPTICUS [None]
  - EPILEPSY [None]
